FAERS Safety Report 7094494-3 (Version None)
Quarter: 2010Q4

REPORT INFORMATION
  Report Type: 
  Country: None (occurrence: None)
  Receive Date: 20101110
  Receipt Date: 20101102
  Transmission Date: 20110411
  Serious: Yes (Other)
  Sender: FDA-Public Use
  Company Number: CHPA2010US17152

PATIENT
  Sex: Female

DRUGS (2)
  1. EXCEDRIN (MIGRAINE) [Suspect]
     Dosage: 2 TABLETS ONCE A NIGHT
     Route: 048
  2. EXCEDRIN ES BACK + BODY (NCH) [Suspect]
     Dosage: UNK , UNK
     Route: 048

REACTIONS (1)
  - COELIAC DISEASE [None]
